FAERS Safety Report 21930865 (Version 1)
Quarter: 2023Q1

REPORT INFORMATION
  Report Type: Spontaneous
  Country: US (occurrence: US)
  Receive Date: 20230131
  Receipt Date: 20230131
  Transmission Date: 20230418
  Serious: Yes (Other)
  Sender: FDA-Public Use
  Company Number: US-MYLANLABS-2023M1010943

PATIENT
  Age: 56 Year
  Sex: Male

DRUGS (6)
  1. MELOXICAM [Suspect]
     Active Substance: MELOXICAM
     Indication: Neuralgia
     Dosage: UNK
     Route: 065
  2. MELOXICAM [Suspect]
     Active Substance: MELOXICAM
     Indication: Pain in extremity
  3. GABAPENTIN [Suspect]
     Active Substance: GABAPENTIN
     Indication: Neuralgia
     Dosage: UNK
     Route: 065
  4. GABAPENTIN [Suspect]
     Active Substance: GABAPENTIN
     Indication: Pain in extremity
  5. HYDROCODONE [Suspect]
     Active Substance: HYDROCODONE
     Indication: Neuralgia
     Dosage: UNK
     Route: 065
  6. HYDROCODONE [Suspect]
     Active Substance: HYDROCODONE
     Indication: Pain in extremity

REACTIONS (1)
  - Drug ineffective [Unknown]
